FAERS Safety Report 14947634 (Version 1)
Quarter: 2018Q2

REPORT INFORMATION
  Report Type: Spontaneous
  Country: US (occurrence: US)
  Receive Date: 20180529
  Receipt Date: 20180529
  Transmission Date: 20180711
  Serious: Yes (Other)
  Sender: FDA-Public Use
  Company Number: US-BAYER-2018-097981

PATIENT
  Age: 36 Year
  Sex: Female

DRUGS (1)
  1. MIRENA [Suspect]
     Active Substance: LEVONORGESTREL
     Indication: CONTRACEPTION
     Dosage: 20 MCG/24HR, CONT
     Route: 015
     Dates: start: 20180321, end: 201805

REACTIONS (8)
  - Pain [None]
  - Chest pain [None]
  - Pulmonary thrombosis [None]
  - Off label use [None]
  - Anaemia [None]
  - Genital haemorrhage [Not Recovered/Not Resolved]
  - Depression [None]
  - Product use issue [None]
